FAERS Safety Report 9108324 (Version 1)
Quarter: 2013Q1

REPORT INFORMATION
  Report Type: Spontaneous
  Country: BR (occurrence: BR)
  Receive Date: 20130222
  Receipt Date: 20130222
  Transmission Date: 20140127
  Serious: Yes (Hospitalization, Other)
  Sender: FDA-Public Use
  Company Number: BR-ROXANE LABORATORIES, INC.-2013-RO-00263RO

PATIENT
  Age: 18 Year
  Sex: Male

DRUGS (6)
  1. AMLODIPINE [Suspect]
     Dosage: 150 MG
     Route: 048
  2. FLUNARIZINE [Suspect]
     Dosage: 250 MG
     Route: 048
  3. HYDROCHLOROTHIAZIDE [Suspect]
     Dosage: 300 MG
     Route: 048
  4. CALCIUM GLUCONATE [Suspect]
     Indication: TOXICITY TO VARIOUS AGENTS
     Dosage: 4 G
     Route: 042
  5. CALCIUM GLUCONATE [Suspect]
     Route: 042
  6. INSULIN [Suspect]
     Indication: HYPERGLYCAEMIA
     Route: 042

REACTIONS (8)
  - Toxicity to various agents [Recovered/Resolved]
  - Bradyarrhythmia [Recovered/Resolved]
  - Suicide attempt [Unknown]
  - Poor peripheral circulation [Unknown]
  - Hyperglycaemia [Unknown]
  - Anuria [Recovered/Resolved]
  - Respiratory disorder [Recovered/Resolved]
  - Pulmonary oedema [Recovered/Resolved]
